FAERS Safety Report 17714893 (Version 10)
Quarter: 2020Q4

REPORT INFORMATION
  Report Type: Report from Study
  Country: CA (occurrence: CA)
  Receive Date: 20200427
  Receipt Date: 20201211
  Transmission Date: 20210113
  Serious: Yes (Hospitalization)
  Sender: FDA-Public Use
  Company Number: PHHY2018CA023939

PATIENT
  Age: 40 Year
  Sex: Male

DRUGS (37)
  1. ILARIS [Suspect]
     Active Substance: CANAKINUMAB
     Dosage: 300 MG, QMO
     Route: 058
     Dates: start: 20180813
  2. ILARIS [Suspect]
     Active Substance: CANAKINUMAB
     Dosage: 150 MG, Q2W
     Route: 058
     Dates: start: 20181219
  3. ILARIS [Suspect]
     Active Substance: CANAKINUMAB
     Dosage: 150 MG, Q2W
     Route: 058
     Dates: start: 20190605
  4. ILARIS [Suspect]
     Active Substance: CANAKINUMAB
     Dosage: 150 MG, Q2W
     Route: 058
     Dates: start: 20190703
  5. ILARIS [Suspect]
     Active Substance: CANAKINUMAB
     Dosage: UNK
     Route: 058
     Dates: start: 20191204
  6. ILARIS [Suspect]
     Active Substance: CANAKINUMAB
     Dosage: 150 MG, Q2W
     Route: 058
     Dates: start: 20190716
  7. ILARIS [Suspect]
     Active Substance: CANAKINUMAB
     Dosage: 150 MG, Q2W
     Route: 058
     Dates: start: 20190925
  8. ILARIS [Suspect]
     Active Substance: CANAKINUMAB
     Indication: TUMOUR NECROSIS FACTOR RECEPTOR-ASSOCIATED PERIODIC SYNDROME
     Dosage: 300 MG, Q2W
     Route: 058
     Dates: start: 20180510
  9. ILARIS [Suspect]
     Active Substance: CANAKINUMAB
     Dosage: 150 MG, Q2W
     Route: 058
     Dates: start: 20181025
  10. ILARIS [Suspect]
     Active Substance: CANAKINUMAB
     Dosage: 150 MG, Q2W
     Route: 058
     Dates: start: 20181107
  11. ILARIS [Suspect]
     Active Substance: CANAKINUMAB
     Dosage: 150 MG, Q2W
     Route: 058
     Dates: start: 20190619
  12. ILARIS [Suspect]
     Active Substance: CANAKINUMAB
     Dosage: 150 MG, BIW
     Route: 058
     Dates: start: 20200408
  13. ILARIS [Suspect]
     Active Substance: CANAKINUMAB
     Dosage: 300 MG, QMO
     Route: 058
     Dates: start: 20180711
  14. ILARIS [Suspect]
     Active Substance: CANAKINUMAB
     Dosage: 150 MG, Q2W
     Route: 058
     Dates: start: 20181205
  15. ILARIS [Suspect]
     Active Substance: CANAKINUMAB
     Dosage: 150 MG, Q2W
     Route: 058
     Dates: start: 20191218
  16. ILARIS [Suspect]
     Active Substance: CANAKINUMAB
     Dosage: 150 MG, BIW
     Route: 058
     Dates: start: 20200520
  17. ILARIS [Suspect]
     Active Substance: CANAKINUMAB
     Dosage: 150 MG, BIW
     Route: 065
     Dates: start: 20200311
  18. ILARIS [Suspect]
     Active Substance: CANAKINUMAB
     Dosage: 150 MG, BIW
     Route: 058
     Dates: start: 20200715
  19. NABILONE [Concomitant]
     Active Substance: NABILONE
     Indication: PRODUCT USED FOR UNKNOWN INDICATION
     Dosage: 0.5 MG, BID
     Route: 048
     Dates: end: 201908
  20. ILARIS [Suspect]
     Active Substance: CANAKINUMAB
     Dosage: 300 MG, QMO
     Route: 058
     Dates: start: 20180611
  21. ILARIS [Suspect]
     Active Substance: CANAKINUMAB
     Dosage: 150 MG, Q2W
     Route: 058
  22. ILARIS [Suspect]
     Active Substance: CANAKINUMAB
     Dosage: UNK
     Route: 058
     Dates: start: 20190313
  23. ILARIS [Suspect]
     Active Substance: CANAKINUMAB
     Dosage: 150 MG, BIW
     Route: 065
     Dates: start: 20200115
  24. ILARIS [Suspect]
     Active Substance: CANAKINUMAB
     Dosage: 150 MG, BIW
     Route: 058
     Dates: start: 20200506
  25. ILARIS [Suspect]
     Active Substance: CANAKINUMAB
     Dosage: UNK
     Route: 065
  26. ILARIS [Suspect]
     Active Substance: CANAKINUMAB
     Dosage: 150 MG, Q2W
     Route: 058
     Dates: start: 20181121
  27. ILARIS [Suspect]
     Active Substance: CANAKINUMAB
     Dosage: 150 MG, Q2W
     Route: 058
     Dates: start: 20190327
  28. ILARIS [Suspect]
     Active Substance: CANAKINUMAB
     Dosage: 150 MG, Q2W
     Route: 058
     Dates: start: 20190522
  29. ILARIS [Suspect]
     Active Substance: CANAKINUMAB
     Dosage: 150 MG, Q2W
     Route: 058
     Dates: start: 20190731
  30. ILARIS [Suspect]
     Active Substance: CANAKINUMAB
     Dosage: 150 MG, Q2W
     Route: 058
     Dates: start: 20190911
  31. ILARIS [Suspect]
     Active Substance: CANAKINUMAB
     Dosage: 150 MG BIW
     Route: 058
     Dates: start: 20200629
  32. TOPIRAMATE. [Concomitant]
     Active Substance: TOPIRAMATE
     Indication: PRODUCT USED FOR UNKNOWN INDICATION
     Dosage: 50 MG, BID
     Route: 065
     Dates: start: 20190906
  33. ILARIS [Suspect]
     Active Substance: CANAKINUMAB
     Dosage: 150 MG, Q2W
     Route: 058
     Dates: start: 20190102
  34. ILARIS [Suspect]
     Active Substance: CANAKINUMAB
     Dosage: 150 MG, Q2W
     Route: 058
     Dates: start: 20190227
  35. ILARIS [Suspect]
     Active Substance: CANAKINUMAB
     Dosage: 150 MG, Q2W
     Route: 058
     Dates: start: 20190828
  36. ILARIS [Suspect]
     Active Substance: CANAKINUMAB
     Dosage: 150 MG, Q2W
     Route: 058
     Dates: start: 20191023
  37. ILARIS [Suspect]
     Active Substance: CANAKINUMAB
     Dosage: 150 MG, BIW
     Route: 058
     Dates: start: 20200617

REACTIONS (33)
  - Rash [Recovered/Resolved]
  - Blood pressure systolic increased [Unknown]
  - Injection site pain [Recovering/Resolving]
  - Nasopharyngitis [Unknown]
  - Headache [Recovered/Resolved]
  - Headache [Recovered/Resolved]
  - Heart rate increased [Unknown]
  - Pain [Unknown]
  - Palpitations [Recovered/Resolved]
  - Rash erythematous [Recovered/Resolved]
  - Rash [Recovering/Resolving]
  - Tumour necrosis factor receptor-associated periodic syndrome [Recovered/Resolved]
  - Condition aggravated [Recovered/Resolved]
  - Tumour necrosis factor receptor-associated periodic syndrome [Recovered/Resolved]
  - Condition aggravated [Recovered/Resolved]
  - Injection site reaction [Recovering/Resolving]
  - Rash [Recovered/Resolved]
  - Headache [Recovering/Resolving]
  - Chest discomfort [Unknown]
  - Dizziness [Recovered/Resolved]
  - Hot flush [Unknown]
  - Synovial cyst [Recovering/Resolving]
  - Headache [Recovered/Resolved]
  - Diarrhoea [Unknown]
  - Blood pressure increased [Unknown]
  - Abdominal pain [Unknown]
  - Fatigue [Unknown]
  - Haemorrhoids [Unknown]
  - Peripheral swelling [Recovered/Resolved]
  - Headache [Recovered/Resolved]
  - Dry mouth [Unknown]
  - Feeling hot [Recovered/Resolved]
  - Paraesthesia [Recovered/Resolved]

NARRATIVE: CASE EVENT DATE: 20180512
